FAERS Safety Report 15691911 (Version 4)
Quarter: 2020Q1

REPORT INFORMATION
  Report Type: Spontaneous
  Country: US (occurrence: US)
  Receive Date: 20181205
  Receipt Date: 20200331
  Transmission Date: 20200409
  Serious: Yes (Other)
  Sender: FDA-Public Use
  Company Number: PHEH2018US051336

PATIENT
  Age: 48 Year
  Sex: Male

DRUGS (1)
  1. TASIGNA [Suspect]
     Active Substance: NILOTINIB
     Indication: CHRONIC MYELOID LEUKAEMIA
     Dosage: 300 MG, BID
     Route: 065
     Dates: start: 20140623, end: 201702

REACTIONS (10)
  - Peripheral vascular disorder [Unknown]
  - Emotional distress [Unknown]
  - Anxiety [Unknown]
  - Arteriosclerosis [Unknown]
  - Pain [Unknown]
  - Injury [Unknown]
  - Hypoaesthesia [Unknown]
  - Ischaemic neuropathy [Unknown]
  - Peripheral artery stenosis [Unknown]
  - Paraesthesia [Unknown]

NARRATIVE: CASE EVENT DATE: 20170323
